FAERS Safety Report 15585349 (Version 1)
Quarter: 2018Q4

REPORT INFORMATION
  Report Type: Spontaneous
  Country: CA (occurrence: CA)
  Receive Date: 20181105
  Receipt Date: 20181105
  Transmission Date: 20190205
  Serious: Yes (Other)
  Sender: FDA-Public Use
  Company Number: CA-PFIZER INC-2018405419

PATIENT
  Age: 61 Year
  Sex: Female

DRUGS (3)
  1. XELJANZ [Suspect]
     Active Substance: TOFACITINIB CITRATE
     Indication: RHEUMATOID ARTHRITIS
     Dosage: 5 MG, 2X/DAY
     Route: 048
     Dates: start: 20180901, end: 20181001
  2. METHOTREXATE SODIUM. [Suspect]
     Active Substance: METHOTREXATE SODIUM
     Dosage: UNK
  3. SIMPONI [Concomitant]
     Active Substance: GOLIMUMAB
     Dosage: UNK

REACTIONS (4)
  - Productive cough [Not Recovered/Not Resolved]
  - Chest pain [Not Recovered/Not Resolved]
  - Cerebrovascular accident [Unknown]
  - Ocular vascular disorder [Unknown]
